FAERS Safety Report 10236363 (Version 1)
Quarter: 2014Q2

REPORT INFORMATION
  Report Type: Spontaneous
  Country: IT (occurrence: IT)
  Receive Date: 20140613
  Receipt Date: 20140613
  Transmission Date: 20141212
  Serious: Yes (Other)
  Sender: FDA-Public Use
  Company Number: IT-ACTAVIS-2014-12336

PATIENT
  Age: 89 Year
  Sex: Male
  Weight: 85 kg

DRUGS (1)
  1. CLOPIDOGREL ACTAVIS [Suspect]
     Indication: PRODUCT USED FOR UNKNOWN INDICATION
     Dosage: 1 DF, DAILY
     Route: 048
     Dates: start: 20140308, end: 20140529

REACTIONS (4)
  - Anger [Not Recovered/Not Resolved]
  - Confusional state [Not Recovered/Not Resolved]
  - Vasodilatation [Not Recovered/Not Resolved]
  - Pruritus generalised [Not Recovered/Not Resolved]
